FAERS Safety Report 4781239-2 (Version None)
Quarter: 2005Q3

REPORT INFORMATION
  Report Type: 
  Country: None (occurrence: None)
  Receive Date: 20050914
  Receipt Date: 20050112
  Transmission Date: 20060218
  Serious: Yes (Hospitalization)
  Sender: FDA-Public Use
  Company Number: 163-20785-05010254

PATIENT
  Age: 76 Year
  Sex: Male

DRUGS (6)
  1. THALOMID [Suspect]
     Indication: MULTIPLE MYELOMA
     Dosage: 200 MG, DAILY, ORAL
     Route: 048
     Dates: start: 20040201, end: 20040301
  2. DEXAMETHASONE [Suspect]
     Indication: MULTIPLE MYELOMA
     Dates: start: 20040201, end: 20040301
  3. VERAPAMIL [Concomitant]
  4. COUMADIN [Concomitant]
  5. POTASSIUM (POTASSIUM) [Concomitant]
  6. AMBIEN [Concomitant]

REACTIONS (4)
  - DEEP VEIN THROMBOSIS [None]
  - NEUROPATHY PERIPHERAL [None]
  - PSEUDOMONAS INFECTION [None]
  - RASH [None]
